FAERS Safety Report 9993432 (Version 1)
Quarter: 2014Q1

REPORT INFORMATION
  Report Type: Spontaneous
  Country: DK (occurrence: DK)
  Receive Date: 20140310
  Receipt Date: 20140310
  Transmission Date: 20141002
  Serious: Yes (Other)
  Sender: FDA-Public Use
  Company Number: DK-MYLANLABS-2014S1004432

PATIENT
  Sex: Female

DRUGS (1)
  1. LAMOTRIGIN [Suspect]
     Indication: EPILEPSY
     Dosage: 150 MG, DAILY

REACTIONS (2)
  - Osteoporosis [Unknown]
  - Alopecia [Unknown]
